FAERS Safety Report 17003022 (Version 1)
Quarter: 2019Q4

REPORT INFORMATION
  Report Type: Spontaneous
  Country: GB (occurrence: GB)
  Receive Date: 20191107
  Receipt Date: 20191107
  Transmission Date: 20200122
  Serious: Yes (Other)
  Sender: FDA-Public Use
  Company Number: GB-ASTRAZENECA-2019SF53984

PATIENT
  Age: 70 Year
  Sex: Female
  Weight: 59 kg

DRUGS (6)
  1. SUMATRIPTAN. [Concomitant]
     Active Substance: SUMATRIPTAN
     Indication: MIGRAINE
     Dosage: TAKE ONE AS SOON AS MIGRAINE, REPEAT AFTER 2 HOURS
     Dates: start: 20161007
  2. PANTOPRAZOLE [Concomitant]
     Active Substance: PANTOPRAZOLE
     Dates: start: 20191014
  3. BETAHISTINE [Concomitant]
     Active Substance: BETAHISTINE
     Dosage: TAKE ONE OR TWO THREE TIMES A DAY
     Dates: start: 20161007
  4. OMEPRAZOLE. [Suspect]
     Active Substance: OMEPRAZOLE
     Route: 048
     Dates: start: 20190808, end: 20190905
  5. LACTULOSE. [Concomitant]
     Active Substance: LACTULOSE
     Dates: start: 20161007
  6. AMITRIPTYLINE HYDROCHLORIDE. [Concomitant]
     Active Substance: AMITRIPTYLINE HYDROCHLORIDE
     Dosage: TO BE TAKEN AT NIGHT
     Dates: start: 20181127

REACTIONS (1)
  - Oral mucosal blistering [Recovered/Resolved]
